FAERS Safety Report 14447942 (Version 6)
Quarter: 2018Q2

REPORT INFORMATION
  Report Type: Spontaneous
  Country: GB (occurrence: GB)
  Receive Date: 20180126
  Receipt Date: 20180518
  Transmission Date: 20180711
  Serious: Yes (Death, Hospitalization)
  Sender: FDA-Public Use
  Company Number: GB-LPDUSPRD-20180079

PATIENT
  Age: 53 Year
  Sex: Female
  Weight: 62 kg

DRUGS (1)
  1. FERINJECT [Suspect]
     Active Substance: FERRIC CARBOXYMALTOSE
     Dosage: 1000 MG
     Route: 041
     Dates: start: 20180103, end: 20180103

REACTIONS (6)
  - Lactic acidosis [Fatal]
  - Rhabdomyolysis [Fatal]
  - Intestinal ischaemia [Fatal]
  - Intestinal infarction [Fatal]
  - Spinal compression fracture [Unknown]
  - Hypoxia [Fatal]

NARRATIVE: CASE EVENT DATE: 20180103
